FAERS Safety Report 4587586-1 (Version None)
Quarter: 2005Q1

REPORT INFORMATION
  Report Type: 
  Country: None (occurrence: None)
  Receive Date: 20050125
  Receipt Date: 20040913
  Transmission Date: 20050727
  Serious: No
  Sender: FDA-Public Use
  Company Number: USA040978176

PATIENT
  Age: 88 Year
  Sex: Female

DRUGS (10)
  1. FORTEO [Suspect]
     Indication: OSTEOPOROSIS
     Dates: start: 20040501
  2. LASIX [Concomitant]
  3. TYLENOL (CAPLET) [Concomitant]
  4. ULTRAM [Concomitant]
  5. MOBIC [Concomitant]
  6. SYNTHROID [Concomitant]
  7. QUININE SULFATE [Concomitant]
  8. ZANTAC [Concomitant]
  9. CALCIUM GLUCONATE [Concomitant]
  10. MULTIVITAMIN [Concomitant]

REACTIONS (4)
  - ARTHRITIS [None]
  - HYPOAESTHESIA [None]
  - JOINT STIFFNESS [None]
  - PAIN IN EXTREMITY [None]
